FAERS Safety Report 7218434-9 (Version None)
Quarter: 2011Q1

REPORT INFORMATION
  Report Type: 
  Country: None (occurrence: None)
  Receive Date: 20110110
  Receipt Date: 20110105
  Transmission Date: 20110831
  Serious: Yes (Death, Hospitalization)
  Sender: FDA-Public Use
  Company Number: US-US-EMD SERONO, INC.-7034601

PATIENT
  Sex: Male

DRUGS (5)
  1. REBIF [Suspect]
     Route: 058
     Dates: start: 20040316, end: 20100101
  2. ELAVIL [Concomitant]
     Indication: DEPRESSION
  3. REBIF [Suspect]
     Indication: MULTIPLE SCLEROSIS
     Route: 058
     Dates: start: 20030101
  4. ELAVIL [Concomitant]
     Indication: SLEEP DISORDER
  5. HERBAL SUPPLEMENT [Concomitant]
     Indication: INTESTINAL FUNCTIONAL DISORDER

REACTIONS (10)
  - ENDOCARDITIS [None]
  - VENTRICULAR SEPTAL DEFECT [None]
  - MENTAL STATUS CHANGES [None]
  - VOMITING [None]
  - CARDIAC ARREST [None]
  - AORTIC VALVE INCOMPETENCE [None]
  - CARDIAC VALVE ABSCESS [None]
  - ELECTROCARDIOGRAM CHANGE [None]
  - NAUSEA [None]
  - TROPONIN INCREASED [None]
